FAERS Safety Report 10528664 (Version 4)
Quarter: 2014Q4

REPORT INFORMATION
  Report Type: Report from Study
  Country: KR (occurrence: KR)
  Receive Date: 20141020
  Receipt Date: 20141103
  Transmission Date: 20150528
  Serious: Yes (Hospitalization, Other)
  Sender: FDA-Public Use
  Company Number: KR-BAYER-2014-143005

PATIENT
  Age: 61 Year
  Sex: Male

DRUGS (2)
  1. NEXAVAR [Suspect]
     Active Substance: SORAFENIB
     Indication: METASTASES TO LUNG
     Dosage: UNKNOWN DOSE
     Route: 048
  2. NEXAVAR [Suspect]
     Active Substance: SORAFENIB
     Indication: THYROID CANCER
     Dosage: 400 MG, BID
     Route: 048
     Dates: start: 20140923

REACTIONS (14)
  - Hypophagia [None]
  - Musculoskeletal disorder [None]
  - Dysstasia [None]
  - Haemoptysis [None]
  - Dysphonia [None]
  - Paraesthesia oral [Recovered/Resolved]
  - Retching [None]
  - Pain in extremity [None]
  - Pain [None]
  - Tongue movement disturbance [Recovered/Resolved]
  - Blister [None]
  - Gait disturbance [Recovering/Resolving]
  - Eating disorder [None]
  - Fall [None]

NARRATIVE: CASE EVENT DATE: 20140924
